FAERS Safety Report 24463885 (Version 12)
Quarter: 2025Q2

REPORT INFORMATION
  Report Type: Report from Study
  Country: US (occurrence: US)
  Receive Date: 20241018
  Receipt Date: 20250606
  Transmission Date: 20250717
  Serious: Yes (Hospitalization, Other)
  Sender: NOVARTIS
  Company Number: US-002147023-NVSC2024US174020

PATIENT
  Age: 61 Year
  Sex: Female
  Weight: 70.295 kg

DRUGS (52)
  1. LAMPRENE [Suspect]
     Active Substance: CLOFAZIMINE
     Indication: Mycobacterium abscessus infection
     Dosage: 100 MG, QD
     Route: 048
     Dates: start: 20240729
  2. LAMPRENE [Suspect]
     Active Substance: CLOFAZIMINE
     Dosage: 100 MG, QD
     Route: 048
     Dates: start: 202408
  3. LAMPRENE [Suspect]
     Active Substance: CLOFAZIMINE
     Dosage: 100 MG, QD
     Route: 048
     Dates: start: 20240930
  4. LAMPRENE [Suspect]
     Active Substance: CLOFAZIMINE
     Dosage: 100 MG, QD, DATE DOSE TAKEN PRIOR TO AE
     Route: 048
     Dates: start: 20241031
  5. LAMPRENE [Suspect]
     Active Substance: CLOFAZIMINE
     Dosage: 100 MG, QD
     Route: 048
     Dates: start: 20241107
  6. LAMPRENE [Suspect]
     Active Substance: CLOFAZIMINE
     Dosage: 100 MG, QD
     Route: 048
     Dates: start: 20241208
  7. LAMPRENE [Suspect]
     Active Substance: CLOFAZIMINE
     Dosage: 100 MG, QD, DATE DOSE TAKEN PRIOR TO AE
     Route: 048
     Dates: start: 20250225
  8. LAMPRENE [Suspect]
     Active Substance: CLOFAZIMINE
     Dosage: 100 MG, QD, DATE DOSE TAKEN PRIOR TO AE
     Route: 048
     Dates: start: 20250302, end: 20250423
  9. LAMPRENE [Suspect]
     Active Substance: CLOFAZIMINE
     Dosage: 100 MG, QD (STOP DATE: 24-APR-2025)
     Route: 048
  10. GABAPENTIN [Suspect]
     Active Substance: GABAPENTIN
     Indication: Pain
     Dosage: 2 DOSAGE FORM, Q8H
     Route: 065
     Dates: start: 20240607
  11. GABAPENTIN [Suspect]
     Active Substance: GABAPENTIN
     Route: 065
     Dates: start: 20250227, end: 20250318
  12. IMIPENEM [Suspect]
     Active Substance: IMIPENEM
     Indication: Mycobacterial infection
     Route: 041
     Dates: start: 20240418
  13. IMIPENEM [Suspect]
     Active Substance: IMIPENEM
     Route: 041
     Dates: start: 20240819
  14. IMIPENEM [Suspect]
     Active Substance: IMIPENEM
     Route: 041
     Dates: start: 20240930
  15. AMIKACIN [Suspect]
     Active Substance: AMIKACIN
     Indication: Mycobacterial infection
     Route: 065
     Dates: start: 20240312
  16. AMIKACIN [Suspect]
     Active Substance: AMIKACIN
     Route: 042
     Dates: start: 20240523
  17. AMIKACIN [Suspect]
     Active Substance: AMIKACIN
     Route: 042
     Dates: start: 20240819
  18. AMIKACIN [Suspect]
     Active Substance: AMIKACIN
     Route: 041
     Dates: start: 20240930
  19. AMIKACIN [Suspect]
     Active Substance: AMIKACIN
     Route: 041
     Dates: start: 20241106, end: 20250423
  20. LASIX [Suspect]
     Active Substance: FUROSEMIDE
     Indication: Hypertension
     Route: 048
     Dates: start: 20240507, end: 20241208
  21. LASIX [Suspect]
     Active Substance: FUROSEMIDE
     Route: 042
  22. OMADACYCLINE [Suspect]
     Active Substance: OMADACYCLINE
     Indication: Mycobacterial infection
     Dosage: 300 MG, QD
     Route: 048
     Dates: start: 20240419
  23. OMADACYCLINE [Suspect]
     Active Substance: OMADACYCLINE
     Dosage: 300 MG, QD
     Route: 048
     Dates: start: 202408
  24. OMADACYCLINE [Suspect]
     Active Substance: OMADACYCLINE
     Dosage: 300 MG, QD
     Route: 048
     Dates: start: 20240930
  25. OMADACYCLINE [Suspect]
     Active Substance: OMADACYCLINE
     Route: 048
  26. OMADACYCLINE [Suspect]
     Active Substance: OMADACYCLINE
     Dosage: 150 MG, QD, DATE DOSE LAST TAKEN PRIOR TO AE
     Route: 048
     Dates: start: 20250207
  27. PROPRANOLOL HYDROCHLORIDE [Concomitant]
     Active Substance: PROPRANOLOL HYDROCHLORIDE
     Indication: Hypertension
     Dosage: 20 MG, BID
     Route: 048
     Dates: start: 20200705
  28. BUPROPION HYDROCHLORIDE [Concomitant]
     Active Substance: BUPROPION HYDROCHLORIDE
     Indication: Depression
     Dosage: 300 MG, QD
     Route: 048
     Dates: start: 20240605
  29. BUPROPION HYDROCHLORIDE [Concomitant]
     Active Substance: BUPROPION HYDROCHLORIDE
     Dosage: 300 MG, QD
     Route: 048
     Dates: start: 20240819
  30. ACETAMINOPHEN [Concomitant]
     Active Substance: ACETAMINOPHEN
     Indication: Pain
     Route: 048
     Dates: start: 20240704
  31. BENADRYL [Concomitant]
     Active Substance: DIPHENHYDRAMINE HYDROCHLORIDE
     Indication: Pruritus
     Route: 048
     Dates: start: 20240604
  32. CETIRIZINE [Concomitant]
     Active Substance: CETIRIZINE HYDROCHLORIDE
     Indication: Seasonal allergy
     Dosage: 10 MG, QD
     Route: 048
     Dates: start: 20240507
  33. FERROUS SULFATE [Concomitant]
     Active Substance: FERROUS SULFATE
     Indication: Anaemia
     Dosage: 325 MG, BID
     Route: 048
     Dates: start: 20240705
  34. FUROSEMIDE [Concomitant]
     Active Substance: FUROSEMIDE
     Indication: Hypertension
     Dosage: 40 MG, QD
     Route: 048
     Dates: start: 20240507
  35. HYDROCHLOROTHIAZIDE [Concomitant]
     Active Substance: HYDROCHLOROTHIAZIDE
     Indication: Hypertension
     Dosage: 25 MG, QD
     Route: 048
     Dates: start: 20240507
  36. HYDROCORTISONE [Concomitant]
     Active Substance: HYDROCORTISONE
     Indication: Rash papular
     Dosage: UNK, BID, TOPICAL TO LEG SPOT
     Route: 050
     Dates: start: 20240716
  37. MELATONIN [Concomitant]
     Active Substance: MELATONIN
     Indication: Insomnia
     Dosage: 2 DOSAGE FORM, Q24H
     Route: 048
     Dates: start: 20240713
  38. MILK OF MAGNESIA [Concomitant]
     Active Substance: MAGNESIUM HYDROXIDE
     Indication: Prophylaxis
     Dosage: 30 ML, Q24H
     Route: 048
     Dates: start: 20240507
  39. MONTELUKAST SODIUM [Concomitant]
     Active Substance: MONTELUKAST SODIUM
     Indication: Seasonal allergy
     Dosage: 10 MG, QD
     Route: 048
     Dates: start: 20240507
  40. MONTELUKAST SODIUM [Concomitant]
     Active Substance: MONTELUKAST SODIUM
     Indication: Asthma
  41. SODIUM CHLORIDE [Concomitant]
     Active Substance: SODIUM CHLORIDE
     Indication: Product used for unknown indication
     Route: 042
     Dates: start: 20240507
  42. SUCRALFATE [Concomitant]
     Active Substance: SUCRALFATE
     Indication: Gastrooesophageal reflux disease
     Route: 048
     Dates: start: 20240820
  43. NYSTATIN [Concomitant]
     Active Substance: NYSTATIN
     Indication: Rash
     Dosage: UNK, BID, POWDER TO ABDOMEN FOLDS TOPICAL
     Route: 065
     Dates: start: 20240603
  44. OXYCODONE [Concomitant]
     Active Substance: OXYCODONE
     Indication: Pain
     Dosage: 10-325 MG, 1 TAB Q4H
     Route: 048
     Dates: start: 20240724
  45. OXYCODONE [Concomitant]
     Active Substance: OXYCODONE
     Dosage: 5-325 MG, 1 TAB Q4H
     Route: 048
     Dates: start: 20240725
  46. OXYCONTIN [Concomitant]
     Active Substance: OXYCODONE HYDROCHLORIDE
     Indication: Pain
     Dosage: 10 MG, Q12H PRN
     Route: 048
     Dates: start: 20240607
  47. PANTOPRAZOLE [Concomitant]
     Active Substance: PANTOPRAZOLE
     Indication: Gastrooesophageal reflux disease
     Dosage: 40 MG, QD
     Route: 048
     Dates: start: 20240307
  48. PROVENTIL HFA [Concomitant]
     Active Substance: ALBUTEROL SULFATE
     Indication: Asthma
     Dosage: 2 PUFFS, Q6H PRN
     Route: 055
     Dates: start: 20240507
  49. PROVENTIL HFA [Concomitant]
     Active Substance: ALBUTEROL SULFATE
     Indication: Chronic obstructive pulmonary disease
  50. PROVENTIL HFA [Concomitant]
     Active Substance: ALBUTEROL SULFATE
     Indication: Wheezing
  51. SACCHAROMYCES CEREVISIAE [Concomitant]
     Active Substance: SACCHAROMYCES CEREVISIAE
     Indication: Probiotic therapy
     Dosage: 250 MG, QD
     Route: 048
     Dates: start: 20240507
  52. XANAX [Concomitant]
     Active Substance: ALPRAZOLAM
     Indication: Anxiety
     Dosage: 0.25 MG, Q12H PRN
     Route: 048
     Dates: start: 20240715

REACTIONS (27)
  - Gastrointestinal haemorrhage [Recovered/Resolved]
  - Dizziness [Unknown]
  - Haematochezia [Unknown]
  - Faeces discoloured [Unknown]
  - Abdominal pain [Unknown]
  - Diarrhoea [Unknown]
  - Anaemia [Recovering/Resolving]
  - Concomitant disease aggravated [Unknown]
  - Hypokalaemia [Recovered/Resolved]
  - Neutropenia [Not Recovered/Not Resolved]
  - Acute kidney injury [Not Recovered/Not Resolved]
  - Hypokalaemia [Recovered/Resolved]
  - Biliary dilatation [Not Recovered/Not Resolved]
  - Deafness [Not Recovered/Not Resolved]
  - Skin necrosis [Recovering/Resolving]
  - Postoperative abscess [Recovered/Resolved]
  - Hypoalbuminaemia [Recovered/Resolved]
  - Hypomagnesaemia [Not Recovered/Not Resolved]
  - Hyperchloraemia [Not Recovered/Not Resolved]
  - Tooth discolouration [Recovering/Resolving]
  - Impaired healing [Unknown]
  - Hypertransaminasaemia [Recovered/Resolved]
  - Skin hyperpigmentation [Not Recovered/Not Resolved]
  - Rotator cuff syndrome [Not Recovered/Not Resolved]
  - Oedema peripheral [Recovering/Resolving]
  - Hypertransaminasaemia [Not Recovered/Not Resolved]
  - Arthralgia [Unknown]

NARRATIVE: CASE EVENT DATE: 20240801
